FAERS Safety Report 7790726-4 (Version None)
Quarter: 2011Q3

REPORT INFORMATION
  Report Type: 
  Country: None (occurrence: None)
  Receive Date: 20110930
  Receipt Date: 20100727
  Transmission Date: 20111222
  Serious: Yes (Hospitalization, Other)
  Sender: FDA-Public Use
  Company Number: PHHY2010TW31805

PATIENT
  Sex: Male
  Weight: 70 kg

DRUGS (4)
  1. GLEEVEC [Suspect]
     Dosage: 400 MG, UNK
     Route: 048
  2. VITAMINS NOS [Concomitant]
     Dosage: UNK UKN, UNK
  3. GLEEVEC [Suspect]
     Indication: GASTROINTESTINAL STROMAL TUMOUR
     Dosage: 300 MG, UNK
     Route: 048
     Dates: start: 20051223
  4. GLEEVEC [Suspect]
     Dosage: UNK UKN, UNK
     Dates: start: 20100524

REACTIONS (8)
  - SPINAL CORD INJURY [None]
  - HEPATITIS [None]
  - WEIGHT INCREASED [None]
  - HYPOAESTHESIA [None]
  - ORAL MUCOSA EROSION [None]
  - PERNICIOUS ANAEMIA [None]
  - DEPRESSION [None]
  - GINGIVAL EROSION [None]
